FAERS Safety Report 17451783 (Version 1)
Quarter: 2020Q1

REPORT INFORMATION
  Report Type: Spontaneous
  Country: CN (occurrence: CN)
  Receive Date: 20200224
  Receipt Date: 20200224
  Transmission Date: 20200409
  Serious: Yes (Hospitalization, Other)
  Sender: FDA-Public Use
  Company Number: CN-ROCHE-2548657

PATIENT
  Age: 54 Year
  Sex: Female
  Weight: 45 kg

DRUGS (10)
  1. EPIRUBICIN [Concomitant]
     Active Substance: EPIRUBICIN
     Dosage: ADMINISTRATION ON D1
     Route: 065
     Dates: start: 20191115
  2. EPIRUBICIN [Concomitant]
     Active Substance: EPIRUBICIN
     Indication: INVASIVE BREAST CARCINOMA
     Dosage: ADMINISTRATION ON D1
     Route: 065
     Dates: start: 20191023
  3. EPIRUBICIN [Concomitant]
     Active Substance: EPIRUBICIN
     Dosage: ADMINISTRATION ON D1
     Route: 065
     Dates: start: 20191207
  4. CYCLOPHOSPHAMIDE. [Concomitant]
     Active Substance: CYCLOPHOSPHAMIDE
     Dosage: ADMINISTRATION ON D1
     Route: 065
     Dates: start: 20191115
  5. DOCETAXEL. [Suspect]
     Active Substance: DOCETAXEL
     Indication: INVASIVE BREAST CARCINOMA
     Route: 041
  6. HERCEPTIN [Suspect]
     Active Substance: TRASTUZUMAB
     Indication: INVASIVE BREAST CARCINOMA
     Route: 041
  7. EPIRUBICIN [Concomitant]
     Active Substance: EPIRUBICIN
     Dosage: ADMINISTRATION ON D1
     Route: 065
     Dates: start: 20191229
  8. CYCLOPHOSPHAMIDE. [Concomitant]
     Active Substance: CYCLOPHOSPHAMIDE
     Dosage: ADMINISTRATION ON D1
     Route: 065
     Dates: start: 20191207
  9. CYCLOPHOSPHAMIDE. [Concomitant]
     Active Substance: CYCLOPHOSPHAMIDE
     Dosage: ADMINISTRATION ON D1
     Route: 065
     Dates: start: 20191229
  10. CYCLOPHOSPHAMIDE. [Concomitant]
     Active Substance: CYCLOPHOSPHAMIDE
     Indication: INVASIVE BREAST CARCINOMA
     Dosage: ADMINISTRATION ON D1
     Route: 065
     Dates: start: 20191023

REACTIONS (3)
  - Neutrophil count decreased [Recovered/Resolved]
  - White blood cell count decreased [Recovered/Resolved]
  - Bone marrow failure [Recovered/Resolved]

NARRATIVE: CASE EVENT DATE: 20200105
